FAERS Safety Report 5344069-9 (Version None)
Quarter: 2007Q2

REPORT INFORMATION
  Report Type: 
  Country: None (occurrence: None)
  Receive Date: 20070604
  Receipt Date: 20070524
  Transmission Date: 20071010
  Serious: Yes (Congenital Anomaly, Other)
  Sender: FDA-Public Use
  Company Number: B0447985A

PATIENT
  Age: 31 Year
  Sex: Female
  Weight: 60.5 kg

DRUGS (7)
  1. EPIVIR [Suspect]
     Indication: RETROVIRAL INFECTION
     Dosage: 300MG PER DAY
     Route: 048
  2. DIDANOSINE [Suspect]
     Indication: RETROVIRAL INFECTION
     Dosage: 250MG PER DAY
     Route: 048
     Dates: end: 20040109
  3. NORVIR [Suspect]
     Indication: RETROVIRAL INFECTION
     Dosage: 100MG PER DAY
     Route: 048
  4. FUZEON [Suspect]
     Indication: RETROVIRAL INFECTION
     Dosage: 180MG PER DAY
     Route: 058
  5. REYATAZ [Suspect]
     Indication: RETROVIRAL INFECTION
     Dosage: 300MG PER DAY
     Route: 048
  6. VALGANCYCLOVIR [Suspect]
     Indication: CYTOMEGALOVIRUS INFECTION
     Route: 065
     Dates: start: 20040901
  7. COTRIMOXAZOLE [Concomitant]
     Dates: start: 20040101

REACTIONS (4)
  - ABORTION SPONTANEOUS [None]
  - INTRA-UTERINE DEATH [None]
  - PLACENTAL INFARCTION [None]
  - UMBILICAL CORD ABNORMALITY [None]
